FAERS Safety Report 4480673-8 (Version None)
Quarter: 2004Q4

REPORT INFORMATION
  Report Type: 
  Country: None (occurrence: None)
  Receive Date: 20041021
  Receipt Date: 20041008
  Transmission Date: 20050328
  Serious: Yes (Death, Hospitalization)
  Sender: FDA-Public Use
  Company Number: JP-JNJFOC-20040900488

PATIENT
  Sex: Male
  Weight: 40 kg

DRUGS (5)
  1. REMICADE [Suspect]
     Indication: CROHN'S DISEASE
     Route: 042
  2. NEORAL [Concomitant]
  3. PREDONINE [Concomitant]
  4. SOLU-MEDROL [Concomitant]
  5. INTRAVENOUS HYPERALIMENTATION [Concomitant]

REACTIONS (1)
  - LUNG INFECTION PSEUDOMONAL [None]
